FAERS Safety Report 15593040 (Version 1)
Quarter: 2018Q4

REPORT INFORMATION
  Report Type: Spontaneous
  Country: IT (occurrence: IT)
  Receive Date: 20181107
  Receipt Date: 20181107
  Transmission Date: 20190205
  Serious: Yes (Hospitalization)
  Sender: FDA-Public Use
  Company Number: IT-TEVA-2018-IT-972460

PATIENT
  Age: 50 Year
  Sex: Female

DRUGS (4)
  1. QUETIAPINE. [Suspect]
     Active Substance: QUETIAPINE
     Indication: ADJUSTMENT DISORDER WITH DEPRESSED MOOD
     Dosage: 50 MILLIGRAM DAILY;
     Route: 048
     Dates: start: 20181006, end: 20181013
  2. RISPERIDONE. [Suspect]
     Active Substance: RISPERIDONE
     Indication: ADJUSTMENT DISORDER WITH DEPRESSED MOOD
     Dosage: 5 MILLIGRAM DAILY;
     Route: 048
     Dates: start: 20181006, end: 20181010
  3. VALPROIC ACID. [Suspect]
     Active Substance: VALPROIC ACID
     Indication: ADJUSTMENT DISORDER WITH DEPRESSED MOOD
     Dosage: 900 MILLIGRAM DAILY;
     Route: 048
     Dates: start: 20181006, end: 20181013
  4. RAMIPRIL. [Concomitant]
     Active Substance: RAMIPRIL
     Indication: HYPERTENSION
     Dosage: 10 MILLIGRAM DAILY;

REACTIONS (2)
  - Hypokinesia [Recovered/Resolved]
  - Depressed level of consciousness [Recovered/Resolved]

NARRATIVE: CASE EVENT DATE: 20181013
